FAERS Safety Report 14008309 (Version 1)
Quarter: 2017Q3

REPORT INFORMATION
  Report Type: Spontaneous
  Country: US (occurrence: US)
  Receive Date: 20170925
  Receipt Date: 20170925
  Transmission Date: 20171128
  Serious: Yes (Hospitalization)
  Sender: FDA-Public Use
  Company Number: US-LANNETT COMPANY, INC.-US-2017LAN001054

PATIENT

DRUGS (3)
  1. NALOXONE [Suspect]
     Active Substance: NALOXONE
     Indication: PRODUCT USED FOR UNKNOWN INDICATION
     Dosage: 0.8 MG, UNK
     Route: 042
  2. MORPHINE SULFATE. [Suspect]
     Active Substance: MORPHINE SULFATE
     Indication: PAIN
     Dosage: 35 MG/ML
     Route: 042
  3. BUPIVICAINE [Suspect]
     Active Substance: BUPIVACAINE
     Indication: PAIN
     Dosage: 10 MG/ML
     Route: 042

REACTIONS (1)
  - Toxicity to various agents [Recovered/Resolved with Sequelae]
